FAERS Safety Report 6727914-1 (Version None)
Quarter: 2010Q2

REPORT INFORMATION
  Report Type: 
  Country: None (occurrence: None)
  Receive Date: 20100517
  Receipt Date: 20100507
  Transmission Date: 20101027
  Serious: Yes (Life-Threatening, Hospitalization, Other)
  Sender: FDA-Public Use
  Company Number: US-BAYER-201018998NA

PATIENT
  Age: 77 Year
  Sex: Female
  Weight: 71 kg

DRUGS (3)
  1. AVELOX [Suspect]
     Indication: ATELECTASIS
     Route: 042
  2. CORTICOIDS [Concomitant]
     Indication: ATELECTASIS
     Route: 042
  3. BRONCHODILATORS [Concomitant]
     Indication: LUNG INFILTRATION

REACTIONS (2)
  - PSYCHOTIC DISORDER [None]
  - TORSADE DE POINTES [None]
